FAERS Safety Report 6223632-7 (Version None)
Quarter: 2009Q2

REPORT INFORMATION
  Report Type: 
  Country: None (occurrence: None)
  Receive Date: 20090611
  Receipt Date: 20090414
  Transmission Date: 20091009
  Serious: No
  Sender: FDA-Public Use
  Company Number: US-ABBOTT-08P-163-0474874-00

PATIENT
  Sex: Male
  Weight: 87.622 kg

DRUGS (1)
  1. HUMIRA [Suspect]
     Indication: PSORIASIS
     Route: 058
     Dates: start: 20080731

REACTIONS (10)
  - EYELID MARGIN CRUSTING [None]
  - HYPOAESTHESIA FACIAL [None]
  - HYPOAESTHESIA ORAL [None]
  - NASAL ULCER [None]
  - ORAL HERPES [None]
  - PRURITUS [None]
  - SALIVARY GLAND ENLARGEMENT [None]
  - STOMATITIS [None]
  - SWELLING FACE [None]
  - URTICARIA [None]
